FAERS Safety Report 4959935-3 (Version None)
Quarter: 2006Q1

REPORT INFORMATION
  Report Type: 
  Country: None (occurrence: None)
  Receive Date: 20060331
  Receipt Date: 20051123
  Transmission Date: 20060701
  Serious: Yes (Hospitalization)
  Sender: FDA-Public Use
  Company Number: US-MERCK-0511USA04411

PATIENT
  Age: 37 Year
  Sex: Female
  Weight: 97 kg

DRUGS (4)
  1. VIOXX [Suspect]
     Indication: ARTHRITIS
     Route: 048
     Dates: start: 19990101, end: 20040101
  2. VICODIN ES [Concomitant]
     Route: 065
  3. SOMA [Concomitant]
     Route: 065
  4. TYLENOL (CAPLET) [Concomitant]
     Route: 065

REACTIONS (7)
  - ABDOMINAL PAIN UPPER [None]
  - ABDOMINAL RIGIDITY [None]
  - ARTHRALGIA [None]
  - BACK PAIN [None]
  - CHEST PAIN [None]
  - LIVER DISORDER [None]
  - MYOCARDIAL INFARCTION [None]
